FAERS Safety Report 4339850-9 (Version None)
Quarter: 2004Q2

REPORT INFORMATION
  Report Type: 
  Country: None (occurrence: None)
  Receive Date: 20040415
  Receipt Date: 20040415
  Transmission Date: 20050107
  Serious: Yes (Other)
  Sender: FDA-Public Use
  Company Number: None

PATIENT
  Sex: Male

DRUGS (9)
  1. AMINOGLUTETHIMIDE [Suspect]
     Dosage: 250 MG PO Q 6 H
     Route: 048
     Dates: start: 20031224, end: 20040105
  2. LISINOPRIL [Concomitant]
  3. CASUDEX [Concomitant]
  4. KCL TAB [Concomitant]
  5. METHADONE HCL [Concomitant]
  6. DEPOT LUPRON [Concomitant]
  7. PERCOCET [Concomitant]
  8. PREDNISONE [Concomitant]
  9. COMPAZINE [Concomitant]

REACTIONS (6)
  - CONFUSIONAL STATE [None]
  - DYSARTHRIA [None]
  - PRURITUS [None]
  - RASH [None]
  - SOMNOLENCE [None]
  - URTICARIA [None]
